FAERS Safety Report 5158911-8 (Version None)
Quarter: 2006Q4

REPORT INFORMATION
  Report Type: 
  Country: None (occurrence: None)
  Receive Date: 20061117
  Receipt Date: 20061025
  Transmission Date: 20070319
  Serious: Yes (Other)
  Sender: FDA-Public Use
  Company Number: 2006136296

PATIENT
  Sex: 0

DRUGS (1)
  1. CELEBREX [Suspect]

REACTIONS (1)
  - HEART INJURY [None]
